FAERS Safety Report 7375830-7 (Version None)
Quarter: 2011Q1

REPORT INFORMATION
  Report Type: 
  Country: None (occurrence: None)
  Receive Date: 20110325
  Receipt Date: 20110317
  Transmission Date: 20110831
  Serious: Yes (Death, Life-Threatening, Hospitalization, Disabling)
  Sender: FDA-Public Use
  Company Number: A0902042A

PATIENT
  Age: 83 Year
  Sex: Female

DRUGS (10)
  1. INSULIN [Concomitant]
  2. WARFARIN [Concomitant]
  3. COSOPT [Concomitant]
  4. XALATAN [Concomitant]
  5. AVANDIA [Suspect]
     Dosage: 8MG PER DAY
     Route: 048
  6. FUROSEMIDE [Concomitant]
  7. METOPROLOL [Concomitant]
  8. DIGOXIN [Concomitant]
  9. PAROXETINE HCL [Concomitant]
  10. ZOCOR [Concomitant]

REACTIONS (10)
  - FALL [None]
  - DEATH [None]
  - RESPIRATORY FAILURE [None]
  - MYOCARDIAL INFARCTION [None]
  - CARDIAC ARREST [None]
  - RENAL FAILURE [None]
  - ADVERSE EVENT [None]
  - DEPRESSED LEVEL OF CONSCIOUSNESS [None]
  - HIP FRACTURE [None]
  - CEREBROVASCULAR ACCIDENT [None]
